FAERS Safety Report 17249972 (Version 1)
Quarter: 2020Q1

REPORT INFORMATION
  Report Type: Spontaneous
  Country: US (occurrence: US)
  Receive Date: 20200109
  Receipt Date: 20200109
  Transmission Date: 20200409
  Serious: Yes (Hospitalization, Other)
  Sender: FDA-Public Use
  Company Number: US-ACCORD-167473

PATIENT
  Age: 57 Year
  Sex: Male

DRUGS (5)
  1. NICOTINE. [Concomitant]
     Active Substance: NICOTINE
     Dosage: 14MG?PATCH DAILY
  2. DIVALPROEX [Concomitant]
     Active Substance: DIVALPROEX SODIUM
     Indication: SEIZURE
     Dosage: EXTENDED RELEASE?(ER) 500MG TWICE DAILY,
  3. LEVOTHYROXINE. [Concomitant]
     Active Substance: LEVOTHYROXINE
     Dosage: 0.25MG?DAILY
  4. CLOZAPINE. [Suspect]
     Active Substance: CLOZAPINE
     Indication: SCHIZOAFFECTIVE DISORDER BIPOLAR TYPE
     Dosage: 1400MG PER DAY
  5. DOCUSATE SODIUM/SENNOSIDE A+B [Concomitant]
     Dosage: (MIRALAX)

REACTIONS (7)
  - Drug withdrawal convulsions [Unknown]
  - Subdural haematoma [Unknown]
  - Abdominal distension [Not Recovered/Not Resolved]
  - Cerebrovascular accident [Unknown]
  - Blood potassium increased [Unknown]
  - Dizziness [Unknown]
  - Orthostatic hypotension [Unknown]
